FAERS Safety Report 5174148-0 (Version None)
Quarter: 2006Q4

REPORT INFORMATION
  Report Type: 
  Country: None (occurrence: None)
  Receive Date: 20061214
  Receipt Date: 20051007
  Transmission Date: 20070319
  Serious: No
  Sender: FDA-Public Use
  Company Number: US-AMGEN-US153423

PATIENT
  Sex: Female
  Weight: 163.4 kg

DRUGS (7)
  1. ENBREL [Suspect]
     Indication: RHEUMATOID ARTHRITIS
     Route: 058
  2. GLUCOPHAGE [Suspect]
     Route: 065
  3. SYNTHROID [Concomitant]
     Route: 065
  4. LISINOPRIL [Concomitant]
     Route: 065
  5. NEXIUM [Concomitant]
     Route: 065
  6. HYDROCHLOROTHIAZIDE [Concomitant]
     Route: 065
  7. PROVERA [Concomitant]
     Route: 065

REACTIONS (1)
  - DIARRHOEA [None]
